FAERS Safety Report 8611019-9 (Version None)
Quarter: 2012Q3

REPORT INFORMATION
  Report Type: 
  Country: None (occurrence: None)
  Receive Date: 20120822
  Receipt Date: 20120816
  Transmission Date: 20120928
  Serious: Yes (Hospitalization)
  Sender: FDA-Public Use
  Company Number: CO-PFIZER INC-2012202193

PATIENT
  Age: 12 Year
  Sex: Male

DRUGS (1)
  1. GENOTROPIN [Suspect]
     Indication: BODY HEIGHT BELOW NORMAL
     Dosage: 1.2 MG, 1X/DAY
     Route: 058
     Dates: start: 20110201

REACTIONS (5)
  - VARICOCELE [None]
  - INJECTION SITE PAIN [None]
  - VEIN DISORDER [None]
  - GLOMERULONEPHRITIS [None]
  - BLOOD TRIGLYCERIDES INCREASED [None]
